FAERS Safety Report 24611094 (Version 1)
Quarter: 2024Q4

REPORT INFORMATION
  Report Type: Spontaneous
  Country: US (occurrence: US)
  Receive Date: 20241113
  Receipt Date: 20241113
  Transmission Date: 20250115
  Serious: Yes (Hospitalization, Other)
  Sender: GLAXOSMITHKLINE
  Company Number: US-GSK-US2024GSK139307

PATIENT

DRUGS (3)
  1. BUPROPION [Suspect]
     Active Substance: BUPROPION
     Indication: Product used for unknown indication
     Dosage: 150 MG
     Route: 055
  2. NALOXONE [Concomitant]
     Active Substance: NALOXONE
     Indication: Pneumonia aspiration
     Dosage: UNK
  3. PIPERACILLIN AND TAZOBACTAM [Concomitant]
     Active Substance: PIPERACILLIN SODIUM\TAZOBACTAM SODIUM
     Indication: Pneumonia aspiration
     Dosage: UNK

REACTIONS (15)
  - Pulmonary alveolar haemorrhage [Recovered/Resolved]
  - Hypoxia [Recovered/Resolved]
  - Lung infiltration [Recovered/Resolved]
  - Respiratory distress [Recovered/Resolved]
  - Tachypnoea [Recovered/Resolved]
  - Rales [Recovered/Resolved]
  - Lung opacity [Recovered/Resolved]
  - Pleural effusion [Recovered/Resolved]
  - Lung consolidation [Recovered/Resolved]
  - Haemoptysis [Recovered/Resolved]
  - Pulmonary septal thickening [Recovered/Resolved]
  - Sinus tachycardia [Recovered/Resolved]
  - Toxicity to various agents [Recovered/Resolved]
  - Leukocytosis [Recovered/Resolved]
  - Incorrect route of product administration [Unknown]
